FAERS Safety Report 22400457 (Version 1)
Quarter: 2023Q2

REPORT INFORMATION
  Report Type: Spontaneous
  Country: HU (occurrence: None)
  Receive Date: 20230602
  Receipt Date: 20230602
  Transmission Date: 20230721
  Serious: Yes (Hospitalization, Other)
  Sender: FDA-Public Use
  Company Number: 2023A122382

PATIENT
  Age: 39 Year
  Sex: Female

DRUGS (1)
  1. FULVESTRANT [Suspect]
     Active Substance: FULVESTRANT
     Indication: Breast cancer
     Dosage: UNK
     Dates: start: 202204, end: 202208

REACTIONS (9)
  - Patella fracture [Unknown]
  - Breast cancer [Unknown]
  - Fall [Unknown]
  - Carcinoembryonic antigen increased [Recovering/Resolving]
  - Tendon rupture [Unknown]
  - Metastases to lymph nodes [Unknown]
  - Wound [Unknown]
  - Malignant neoplasm progression [Unknown]
  - Metastases to bone [Unknown]

NARRATIVE: CASE EVENT DATE: 20220801
